FAERS Safety Report 6692869-5 (Version None)
Quarter: 2010Q2

REPORT INFORMATION
  Report Type: 
  Country: None (occurrence: None)
  Receive Date: 20100419
  Receipt Date: 20100406
  Transmission Date: 20101027
  Serious: Yes (Hospitalization)
  Sender: FDA-Public Use
  Company Number: 7000456

PATIENT
  Age: 49 Year
  Sex: Male

DRUGS (7)
  1. REBIF [Suspect]
     Indication: MULTIPLE SCLEROSIS
     Dosage: 44 MCG, 3 IN 1 WK, SUBCUTANEOUS
     Route: 058
     Dates: start: 20080731
  2. CYCLOBENZAPRINE [Concomitant]
  3. GABAPENTIN [Concomitant]
  4. MECLIZINE [Concomitant]
  5. ZOLOFT [Concomitant]
  6. KLONOPIN [Concomitant]
  7. BLOOD THINNER (ALL OTHER THERAPEUTIC PRODUCTS) [Concomitant]

REACTIONS (3)
  - NEPHROLITHIASIS [None]
  - RED BLOOD CELL COUNT ABNORMAL [None]
  - URINARY TRACT INFECTION [None]
